FAERS Safety Report 8463318 (Version 5)
Quarter: 2013Q4

REPORT INFORMATION
  Report Type: Report from Study
  Country: ES (occurrence: ES)
  Receive Date: 20120316
  Receipt Date: 20131114
  Transmission Date: 20140711
  Serious: Yes (Hospitalization)
  Sender: FDA-Public Use
  Company Number: ES-JNJFOC-20120305286

PATIENT
  Age: 49 Year
  Sex: Male
  Weight: 80 kg

DRUGS (3)
  1. REMICADE [Suspect]
     Indication: COLITIS ULCERATIVE
     Route: 042
     Dates: start: 20110715, end: 20111212
  2. PREDNISONE [Concomitant]
     Route: 048
     Dates: start: 20120123
  3. IDEOS [Concomitant]
     Route: 048
     Dates: start: 20111212

REACTIONS (2)
  - Portal vein thrombosis [Unknown]
  - Colitis ulcerative [Recovered/Resolved]
